FAERS Safety Report 12200705 (Version 1)
Quarter: 2016Q1

REPORT INFORMATION
  Report Type: Spontaneous
  Country: US (occurrence: US)
  Receive Date: 20160322
  Receipt Date: 20160322
  Transmission Date: 20160526
  Serious: Yes (Other)
  Sender: FDA-Public Use
  Company Number: US-MDT-ADR-2016-00498

PATIENT
  Age: 56 Year
  Sex: Male

DRUGS (22)
  1. CLONAZEPAM. [Suspect]
     Active Substance: CLONAZEPAM
     Dosage: 0.5MG 2-3X/DAY
     Route: 048
  2. DOCUSATE STOOL SOFTENER [Suspect]
     Active Substance: DOCUSATE
     Dosage: 2 CAPSULES/DAY
     Route: 048
  3. LISINOPRIL. [Suspect]
     Active Substance: LISINOPRIL
     Dosage: 10MG/DAY
     Route: 048
  4. DESONIDE LOTION 0.05% [Suspect]
     Active Substance: DESONIDE
     Dosage: .05% 1X/DAY
     Route: 061
  5. VITAMIN B12 [Suspect]
     Active Substance: CYANOCOBALAMIN
     Dosage: 1000MCG/DAY
     Route: 048
  6. VITAMIN C [Suspect]
     Active Substance: ASCORBIC ACID
     Dosage: 500MG/DAY
     Route: 048
  7. LIORESAL [Suspect]
     Active Substance: BACLOFEN
     Dosage: 571.1MCG/DAY
     Route: 037
  8. OXYCODONE [Suspect]
     Active Substance: OXYCODONE
     Dosage: 10MG BID/TID
     Route: 048
  9. ALIGN [Suspect]
     Active Substance: BIFIDOBACTERIUM LONGUM SUBSP. INFANTIS
  10. TYSABRI [Suspect]
     Active Substance: NATALIZUMAB
     Dosage: ONCE EVERY 28 DAYS
  11. LIORESAL [Suspect]
     Active Substance: BACLOFEN
     Dosage: 519.4MCG/DAY
     Route: 037
     Dates: start: 20151209
  12. SODIUM SULFACETAMIDE [Suspect]
     Active Substance: SULFACETAMIDE SODIUM
     Dosage: 4.5% CREAM TWICE WEEK
     Route: 061
  13. MOVANTIK [Suspect]
     Active Substance: NALOXEGOL OXALATE
  14. DICYCLOMINE [Suspect]
     Active Substance: DICYCLOMINE HYDROCHLORIDE
     Dosage: 20MG 3-4X/DAY
     Route: 048
  15. CEPHALEXIN. [Suspect]
     Active Substance: CEPHALEXIN
     Dosage: 500MG TID X10 DAYS
     Route: 048
     Dates: start: 20150811
  16. VITAMIN D3 [Suspect]
     Active Substance: CHOLECALCIFEROL
     Dosage: 5000IU/DAY
     Route: 048
  17. FLONASE [Suspect]
     Active Substance: FLUTICASONE PROPIONATE
     Dosage: 2 SPRAYS EACH NOSTRIL/DAY
     Route: 055
  18. TRIAMCINOLONE ACETONIDE CREAM [Suspect]
     Active Substance: TRIAMCINOLONE ACETONIDE
     Dosage: 0.1%CREAM BID AS NEEDED WHEN HANDS PEEL
     Route: 061
  19. CRANBERRY (36MG OF PAC) [Suspect]
     Active Substance: CRANBERRY
     Dosage: 2 CAPSULES 2X/DAY
     Route: 048
  20. MIRALAX [Suspect]
     Active Substance: POLYETHYLENE GLYCOL 3350
     Dosage: 1 CAPFUL/DAY
     Route: 048
  21. LYRICA [Suspect]
     Active Substance: PREGABALIN
     Dosage: 200MG/DAY
     Route: 048
  22. SODIUM SULFACETAMIDE (WITH SULFUR WASH) [Suspect]
     Active Substance: SULFACETAMIDE SODIUM\SULFUR
     Dosage: 9% CREAM TWICE WEEK
     Route: 061

REACTIONS (5)
  - Neuropathy peripheral [Unknown]
  - Musculoskeletal pain [Unknown]
  - Burning sensation [Unknown]
  - Pain [Unknown]
  - Multiple sclerosis [Unknown]
